FAERS Safety Report 25004646 (Version 1)
Quarter: 2025Q1

REPORT INFORMATION
  Report Type: Report from Study
  Country: CA (occurrence: CA)
  Receive Date: 20250224
  Receipt Date: 20250224
  Transmission Date: 20250408
  Serious: Yes (Other)
  Sender: PFIZER
  Company Number: CA-PFIZER INC-202500028236

PATIENT
  Sex: Female

DRUGS (5)
  1. RITUXIMAB [Suspect]
     Active Substance: RITUXIMAB
     Indication: Rheumatoid arthritis
     Route: 042
  2. METHYLPREDNISOLONE SODIUM PHOSPHATE [Concomitant]
     Active Substance: METHYLPREDNISOLONE SODIUM PHOSPHATE
     Indication: Premedication
     Route: 042
  3. NAPROXEN [Concomitant]
     Active Substance: NAPROXEN
  4. PANTOPRAZOLE SODIUM [Concomitant]
     Active Substance: PANTOPRAZOLE SODIUM
  5. TYLENOL [Concomitant]
     Active Substance: ACETAMINOPHEN
     Indication: Premedication
     Route: 048

REACTIONS (5)
  - Gallbladder disorder [Unknown]
  - Pneumonia [Unknown]
  - Bronchitis [Unknown]
  - Cough [Unknown]
  - Productive cough [Unknown]
